FAERS Safety Report 6283433-0 (Version None)
Quarter: 2009Q3

REPORT INFORMATION
  Report Type: 
  Country: None (occurrence: None)
  Receive Date: 20090724
  Receipt Date: 20090522
  Transmission Date: 20100115
  Serious: No
  Sender: FDA-Public Use
  Company Number: US-ALEXION-A200900262

PATIENT
  Age: 39 Year
  Sex: Female
  Weight: 81.5 kg

DRUGS (1)
  1. SOLIRIS [Suspect]
     Indication: APLASTIC ANAEMIA
     Dosage: 900 MG, Q2W
     Route: 042

REACTIONS (1)
  - NEUTROPENIA [None]
